FAERS Safety Report 24551323 (Version 3)
Quarter: 2024Q4

REPORT INFORMATION
  Report Type: Report from Study
  Country: ES (occurrence: ES)
  Receive Date: 20241025
  Receipt Date: 20241106
  Transmission Date: 20250115
  Serious: Yes (Hospitalization)
  Sender: ABBVIE
  Company Number: ES-ABBVIE-5974352

PATIENT
  Sex: Male

DRUGS (2)
  1. CARBIDOPA\LEVODOPA [Suspect]
     Active Substance: CARBIDOPA\LEVODOPA
     Indication: Parkinson^s disease
     Route: 050
     Dates: start: 20221215
  2. CARBIDOPA\LEVODOPA [Suspect]
     Active Substance: CARBIDOPA\LEVODOPA

REACTIONS (1)
  - Urinary tract infection [Not Recovered/Not Resolved]
